FAERS Safety Report 7989871-X (Version None)
Quarter: 2011Q4

REPORT INFORMATION
  Report Type: 
  Country: None (occurrence: None)
  Receive Date: 20111219
  Receipt Date: 20110127
  Transmission Date: 20120403
  Serious: No
  Sender: FDA-Public Use
  Company Number: US-ASTRAZENECA-2011SE02997

PATIENT
  Age: 52 Year
  Sex: Female
  Weight: 103.9 kg

DRUGS (8)
  1. JANUVIA [Concomitant]
  2. METFORMIN HCL [Concomitant]
  3. VITAMIN B-12 [Concomitant]
  4. ZETIA [Concomitant]
  5. CALCIUM [Concomitant]
  6. CRESTOR [Suspect]
     Indication: HYPERCHOLESTEROLAEMIA
     Route: 048
     Dates: start: 20100101
  7. MULTI-VITAMINS [Concomitant]
     Indication: VITAMIN SUPPLEMENTATION
  8. WELCHOL [Concomitant]

REACTIONS (2)
  - BREAST PAIN [None]
  - WEIGHT DECREASED [None]
